FAERS Safety Report 8062264-5 (Version None)
Quarter: 2012Q1

REPORT INFORMATION
  Report Type: 
  Country: None (occurrence: None)
  Receive Date: 20120118
  Receipt Date: 20120109
  Transmission Date: 20120608
  Serious: Yes (Other)
  Sender: FDA-Public Use
  Company Number: 1000025467

PATIENT
  Age: 29 Year
  Sex: Male
  Weight: 75.29 kg

DRUGS (3)
  1. VIIBRYD [Suspect]
     Indication: DEPRESSION
     Dosage: 40 MG (40 MG, 1 IN 1 D), ORAL
     Route: 048
     Dates: start: 20111017, end: 20111017
  2. VIIBRYD (VILAZODONE) (10 MILLIGAM, TABLETS) [Suspect]
     Indication: DEPRESSION
     Dosage: 10 MG (10 MG, 1 IN 1 D), ORAL; 20 MG (20 MG, 1 IN 1 D), ORAL
     Route: 048
     Dates: start: 20111003, end: 20111009
  3. VIIBRYD (VILAZODONE) (10 MILLIGAM, TABLETS) [Suspect]
     Indication: DEPRESSION
     Dosage: 10 MG (10 MG, 1 IN 1 D), ORAL; 20 MG (20 MG, 1 IN 1 D), ORAL
     Route: 048
     Dates: start: 20111010, end: 20111016

REACTIONS (1)
  - HYPERTENSION [None]
